FAERS Safety Report 6972957-6 (Version None)
Quarter: 2010Q3

REPORT INFORMATION
  Report Type: 
  Country: None (occurrence: None)
  Receive Date: 20100909
  Receipt Date: 20100803
  Transmission Date: 20110219
  Serious: No
  Sender: FDA-Public Use
  Company Number: US-KINGPHARMUSA00001-K201000995

PATIENT
  Sex: Female

DRUGS (7)
  1. EMBEDA [Suspect]
     Indication: BACK PAIN
     Dosage: 20 MG, QD
     Route: 048
     Dates: start: 20100101, end: 20100101
  2. EMBEDA [Suspect]
     Dosage: 20 MG, BID
     Route: 048
     Dates: start: 20100101
  3. IMITREX [Concomitant]
     Indication: MIGRAINE
  4. FLEXERIL [Concomitant]
     Indication: BACK PAIN
     Dosage: UNK
  5. HYDROCODONE [Concomitant]
     Indication: BACK PAIN
     Dosage: UNK
  6. FLECTOR [Concomitant]
     Indication: BACK PAIN
  7. SYNTHROID [Concomitant]
     Indication: HYPOTHYROIDISM

REACTIONS (2)
  - FLUSHING [None]
  - HYPERHIDROSIS [None]
